FAERS Safety Report 24317190 (Version 1)
Quarter: 2024Q3

REPORT INFORMATION
  Report Type: Spontaneous
  Country: US (occurrence: None)
  Receive Date: 20240912
  Receipt Date: 20240912
  Transmission Date: 20241016
  Serious: Yes (Life-Threatening, Hospitalization, Disabling, Other)
  Sender: Public
  Company Number: None

PATIENT
  Age: 60 Year
  Sex: Female
  Weight: 78.75 kg

DRUGS (1)
  1. ZEPBOUND [Suspect]
     Active Substance: TIRZEPATIDE
     Indication: Weight decreased
     Dosage: OTHER FREQUENCY : ONCE A WEEK;?
     Dates: start: 20240301, end: 20240418

REACTIONS (5)
  - Diarrhoea [None]
  - Nausea [None]
  - Loss of consciousness [None]
  - Intestinal obstruction [None]
  - Oesophageal stenosis [None]

NARRATIVE: CASE EVENT DATE: 20240420
